FAERS Safety Report 9989030 (Version 1)
Quarter: 2014Q1

REPORT INFORMATION
  Report Type: Report from Study
  Country: US (occurrence: US)
  Receive Date: 20140310
  Receipt Date: 20140310
  Transmission Date: 20141002
  Serious: No
  Sender: FDA-Public Use
  Company Number: US-ABBVIE-13P-163-1128770-00

PATIENT
  Age: 52 Year
  Sex: Male

DRUGS (7)
  1. HUMIRA [Suspect]
     Indication: COLITIS ULCERATIVE
     Dates: start: 20130626
  2. BUDESONIDE [Concomitant]
     Indication: COLITIS ULCERATIVE
     Dosage: DAILY
  3. NEXIUM [Concomitant]
     Indication: GASTROOESOPHAGEAL REFLUX DISEASE
     Dosage: DAILY
  4. SINGULAIR [Concomitant]
     Indication: SEASONAL ALLERGY
     Dosage: DAILY
  5. COLESTIPOL [Concomitant]
     Indication: DIARRHOEA
     Dosage: DAILY
  6. FIBERCON [Concomitant]
     Indication: DIARRHOEA
     Dosage: DAILY
  7. ASACOL [Concomitant]
     Indication: PRODUCT USED FOR UNKNOWN INDICATION

REACTIONS (3)
  - Rectal haemorrhage [Recovered/Resolved]
  - Viral infection [Recovered/Resolved]
  - Diarrhoea [Recovered/Resolved]
